FAERS Safety Report 4398215-4 (Version None)
Quarter: 2004Q3

REPORT INFORMATION
  Report Type: 
  Country: None (occurrence: None)
  Receive Date: 20040713
  Receipt Date: 20040701
  Transmission Date: 20050211
  Serious: Yes (Death)
  Sender: FDA-Public Use
  Company Number: JP-JNJFOC-20040700650

PATIENT
  Age: 73 Year
  Sex: Male

DRUGS (9)
  1. FENTANYL [Suspect]
     Indication: CANCER PAIN
     Dosage: 2.5 MG , IN 72 HOUR, TRANSDERMAL
     Route: 062
     Dates: start: 20040625, end: 20040628
  2. ZOPICLONE (ZOPICLONE) [Concomitant]
  3. KETOPROFEN (ETOPROFEN) [Concomitant]
  4. MAGNESIUM OXIDE (MAGNESIUM OXIDE) [Concomitant]
  5. SENNOSIDE (ALL OTHER THERAPEUTIC PRODUCTS) [Concomitant]
  6. MELPHALAN (MELPHALAN) [Concomitant]
  7. PREDNISOLONE [Concomitant]
  8. NIZATIDINE [Concomitant]
  9. DICLOFENAC SODIUM [Concomitant]

REACTIONS (2)
  - MALIGNANT NEOPLASM PROGRESSION [None]
  - MULTIPLE MYELOMA [None]
